FAERS Safety Report 7651964-4 (Version None)
Quarter: 2011Q3

REPORT INFORMATION
  Report Type: 
  Country: None (occurrence: None)
  Receive Date: 20110803
  Receipt Date: 20110722
  Transmission Date: 20111222
  Serious: No
  Sender: FDA-Public Use
  Company Number: US-BIOGENIDEC-2011BI027656

PATIENT
  Age: 55 Year
  Sex: Female

DRUGS (2)
  1. AMPYRA [Concomitant]
     Indication: GAIT DISTURBANCE
     Dates: start: 20100301
  2. TYSABRI [Suspect]
     Indication: MULTIPLE SCLEROSIS
     Route: 042
     Dates: start: 20100329

REACTIONS (2)
  - NUCLEAR MAGNETIC RESONANCE IMAGING ABNORMAL [None]
  - HEADACHE [None]
